FAERS Safety Report 20215162 (Version 1)
Quarter: 2021Q4

REPORT INFORMATION
  Report Type: Other
  Country: US (occurrence: None)
  Receive Date: 20211222
  Receipt Date: 20211222
  Transmission Date: 20220303
  Serious: Yes (Hospitalization, Other)
  Sender: FDA-Public Use
  Company Number: US-ROCHE-2932108

PATIENT
  Sex: Female
  Weight: 90.800 kg

DRUGS (2)
  1. OCREVUS [Suspect]
     Active Substance: OCRELIZUMAB
     Indication: Relapsing-remitting multiple sclerosis
     Dosage: DATE OF TREATMENT- 20/JUL/2020, 08/FEB/2021?ASPEN PI - PREL AND ASPER PI - PULLED
     Route: 042
     Dates: start: 20200706
  2. OCREVUS [Suspect]
     Active Substance: OCRELIZUMAB
     Route: 042
     Dates: start: 20211103, end: 20211103

REACTIONS (2)
  - Cerebrovascular accident [Unknown]
  - Seizure [Unknown]
